FAERS Safety Report 7428108-7 (Version None)
Quarter: 2011Q2

REPORT INFORMATION
  Report Type: 
  Country: None (occurrence: None)
  Receive Date: 20110421
  Receipt Date: 20110412
  Transmission Date: 20111010
  Serious: No
  Sender: FDA-Public Use
  Company Number: US-BIOGENIDEC-2011BI005102

PATIENT
  Age: 30 Year
  Sex: Female

DRUGS (1)
  1. TYSABRI [Suspect]
     Indication: MULTIPLE SCLEROSIS
     Route: 042
     Dates: start: 20100430

REACTIONS (7)
  - POOR VENOUS ACCESS [None]
  - PYREXIA [None]
  - SOMNOLENCE [None]
  - GAIT DISTURBANCE [None]
  - CONTUSION [None]
  - DRUG DEPENDENCE [None]
  - FATIGUE [None]
